FAERS Safety Report 7338294-5 (Version None)
Quarter: 2011Q1

REPORT INFORMATION
  Report Type: 
  Country: None (occurrence: None)
  Receive Date: 20110308
  Receipt Date: 20110225
  Transmission Date: 20110831
  Serious: Yes (Hospitalization)
  Sender: FDA-Public Use
  Company Number: B0703936A

PATIENT
  Sex: Female
  Weight: 50 kg

DRUGS (6)
  1. NEXIUM [Concomitant]
     Indication: PROPHYLAXIS
     Dates: start: 20110203
  2. OFATUMUMAB [Suspect]
     Indication: B-CELL LYMPHOMA
     Dosage: 1000MG PER DAY
     Dates: start: 20110211, end: 20110211
  3. DURAGESIC-100 [Concomitant]
     Dates: start: 20110203
  4. CHOP CHEMOTHERAPY [Suspect]
     Indication: B-CELL LYMPHOMA
     Dates: start: 20110211, end: 20110214
  5. DUPHALAC [Concomitant]
     Indication: PROPHYLAXIS
     Dates: start: 20110203
  6. CALCIPARINE [Concomitant]
     Dates: start: 20110203

REACTIONS (1)
  - RECTAL HAEMORRHAGE [None]
